FAERS Safety Report 6659857-6 (Version None)
Quarter: 2010Q1

REPORT INFORMATION
  Report Type: 
  Country: None (occurrence: None)
  Receive Date: 20100330
  Receipt Date: 20100326
  Transmission Date: 20100710
  Serious: Yes (Hospitalization)
  Sender: FDA-Public Use
  Company Number: US-GILEAD-2010-0028152

PATIENT
  Sex: Female
  Weight: 86.4 kg

DRUGS (10)
  1. LETAIRIS [Suspect]
     Indication: PULMONARY ARTERIAL HYPERTENSION
     Route: 048
     Dates: start: 20090615
  2. LASIX [Concomitant]
  3. DIOVAN [Concomitant]
  4. SPIRIVA [Concomitant]
  5. ADVAIR DISKUS 100/50 [Concomitant]
  6. ALBUTEROL [Concomitant]
  7. POTASSIUM [Concomitant]
  8. CALCIUM +D [Concomitant]
  9. VITAMIN B COMPLEX TAB [Concomitant]
  10. MULTI-VITAMIN [Concomitant]

REACTIONS (1)
  - LOBAR PNEUMONIA [None]
